FAERS Safety Report 8906561 (Version 1)
Quarter: 2012Q4

REPORT INFORMATION
  Report Type: 
  Country: MX (occurrence: MX)
  Receive Date: 20121114
  Receipt Date: 20121114
  Transmission Date: 20130627
  Serious: Yes (Hospitalization, Other)
  Sender: FDA-Public Use
  Company Number: MX-UCBSA-070758

PATIENT
  Age: 32 Year
  Sex: Male
  Weight: 68 kg

DRUGS (5)
  1. VIMPAT [Suspect]
     Indication: EPILEPSY
     Route: 048
     Dates: start: 20120615, end: 20120616
  2. VIMPAT [Suspect]
     Indication: EPILEPSY
     Route: 048
     Dates: start: 20120601, end: 20120614
  3. LEVETIRACETAM [Concomitant]
     Indication: EPILEPSY
     Route: 048
     Dates: start: 200603
  4. VALPROATE [Concomitant]
     Indication: EPILEPSY
     Route: 048
     Dates: start: 200202
  5. VIGABATRIN [Concomitant]
     Indication: EPILEPSY
     Route: 048
     Dates: start: 200603

REACTIONS (1)
  - Convulsion [Recovered/Resolved]
